FAERS Safety Report 5750435-X (Version None)
Quarter: 2008Q2

REPORT INFORMATION
  Report Type: 
  Country: None (occurrence: None)
  Receive Date: 20080528
  Receipt Date: 20070601
  Transmission Date: 20081010
  Serious: No
  Sender: FDA-Public Use
  Company Number: US-KINGPHARMUSA00001-K200700676

PATIENT

DRUGS (9)
  1. AVINZA [Suspect]
     Indication: PAIN
     Dosage: 30 MG, UNK
     Route: 048
     Dates: start: 20060101
  2. AVINZA [Suspect]
     Dosage: 60 MG, UNK
     Route: 048
  3. AVINZA [Suspect]
     Dosage: 90 MG, UNK
     Route: 048
  4. AVINZA [Suspect]
     Dosage: 120 MG, UNK
     Route: 048
  5. AVINZA [Suspect]
     Dosage: 90 MG, UNK
     Route: 048
  6. AVINZA [Suspect]
     Dosage: 60 MG, UNK
     Route: 048
  7. AVINZA [Suspect]
     Dosage: 30 MG, UNK
     Route: 048
     Dates: end: 20070501
  8. NORCO [Concomitant]
  9. MIRAPEX [Concomitant]
     Indication: RESTLESS LEGS SYNDROME

REACTIONS (4)
  - INSOMNIA [None]
  - PSYCHOMOTOR HYPERACTIVITY [None]
  - RESTLESS LEGS SYNDROME [None]
  - THERAPEUTIC RESPONSE UNEXPECTED [None]
